FAERS Safety Report 16271186 (Version 1)
Quarter: 2019Q2

REPORT INFORMATION
  Report Type: Spontaneous
  Country: US (occurrence: US)
  Receive Date: 20190503
  Receipt Date: 20190503
  Transmission Date: 20190711
  Serious: No
  Sender: FDA-Public Use
  Company Number: US-GLAXOSMITHKLINE-US2019074816

PATIENT
  Age: 71 Year
  Sex: Female

DRUGS (1)
  1. FLONASE [Suspect]
     Active Substance: FLUTICASONE PROPIONATE
     Indication: HYPERSENSITIVITY
     Dosage: 2 DF, UNK(I USE IT IN THE MORNING AND AT NIGHT )
     Dates: start: 2018

REACTIONS (3)
  - Inappropriate schedule of product administration [Unknown]
  - Extra dose administered [Unknown]
  - Wrong technique in product usage process [Unknown]
